FAERS Safety Report 9881464 (Version 3)
Quarter: 2014Q3

REPORT INFORMATION
  Report Type: Spontaneous
  Country: JP (occurrence: JP)
  Receive Date: 20140207
  Receipt Date: 20140918
  Transmission Date: 20150326
  Serious: Yes (Hospitalization, Other)
  Sender: FDA-Public Use
  Company Number: JP-TEVA-460874ISR

PATIENT
  Age: 77 Year
  Sex: Male

DRUGS (3)
  1. ONE TAXOTERE [Concomitant]
     Indication: PROSTATE CANCER
     Dosage: 120 MG/BODY (70.6 MG/M2)
     Route: 042
     Dates: start: 20131217, end: 20131217
  2. FILGRASTIM BS INJ. NK [Suspect]
     Active Substance: FILGRASTIM
     Indication: NEUTROPENIA
     Dosage: 75 MICROGRAM DAILY;
     Route: 058
     Dates: start: 20140120, end: 20140123
  3. ONE TAXOTERE [Concomitant]
     Dosage: 100 MILLIGRAM DAILY;
     Route: 042
     Dates: start: 20140104, end: 20140104

REACTIONS (3)
  - Pyrexia [Recovered/Resolved]
  - Pneumonia staphylococcal [Unknown]
  - Respiratory failure [Recovering/Resolving]

NARRATIVE: CASE EVENT DATE: 20140120
